FAERS Safety Report 10866119 (Version 1)
Quarter: 2015Q1

REPORT INFORMATION
  Report Type: Spontaneous
  Country: BR (occurrence: None)
  Receive Date: 20150219
  Receipt Date: 20150219
  Transmission Date: 20150721
  Serious: Yes (Hospitalization, Other)
  Sender: FDA-Public Use
  Company Number: BR-ZYDUS-006590

PATIENT
  Age: 12 Year
  Sex: Female

DRUGS (2)
  1. LAMOTRIGINE. [Suspect]
     Active Substance: LAMOTRIGINE
  2. VALPROIC ACID. [Suspect]
     Active Substance: VALPROIC ACID

REACTIONS (15)
  - Nausea [None]
  - Incontinence [None]
  - Ataxia [None]
  - Toxicity to various agents [None]
  - Gait disturbance [None]
  - Diplopia [None]
  - Vomiting [None]
  - Nystagmus [None]
  - Cerebral disorder [None]
  - Cerebellar syndrome [None]
  - Dystonia [None]
  - Tonic clonic movements [None]
  - Drug interaction [None]
  - Unresponsive to stimuli [None]
  - Drooling [None]
